FAERS Safety Report 6576374-2 (Version None)
Quarter: 2010Q1

REPORT INFORMATION
  Report Type: 
  Country: None (occurrence: None)
  Receive Date: 20100210
  Receipt Date: 20100204
  Transmission Date: 20100710
  Serious: Yes (Hospitalization)
  Sender: FDA-Public Use
  Company Number: US-JNJFOC-20100107050

PATIENT
  Age: 57 Year
  Sex: Female
  Weight: 68.04 kg

DRUGS (2)
  1. TYLENOL-500 [Suspect]
     Route: 048
  2. TYLENOL-500 [Suspect]
     Indication: HEADACHE
     Dosage: 2 CAPLETS EVERY 6 HOURS
     Route: 048

REACTIONS (7)
  - ABDOMINAL PAIN UPPER [None]
  - DIARRHOEA [None]
  - DYSPEPSIA [None]
  - GASTROINTESTINAL INFECTION [None]
  - LOSS OF CONSCIOUSNESS [None]
  - OESOPHAGEAL INFECTION [None]
  - PRODUCT ODOUR ABNORMAL [None]
